FAERS Safety Report 21089289 (Version 1)
Quarter: 2022Q3

REPORT INFORMATION
  Report Type: Report from Study
  Country: IT (occurrence: IT)
  Receive Date: 20220715
  Receipt Date: 20220715
  Transmission Date: 20221026
  Serious: Yes (Other)
  Sender: FDA-Public Use
  Company Number: IT-GILEAD-2022-0584348

PATIENT
  Sex: Female
  Weight: 76 kg

DRUGS (1)
  1. SACITUZUMAB GOVITECAN [Suspect]
     Active Substance: SACITUZUMAB GOVITECAN
     Indication: Triple negative breast cancer
     Dosage: 530 MG (3 VIALS) EACH ADMINISTRATION
     Route: 042
     Dates: end: 20220712

REACTIONS (2)
  - Deep vein thrombosis [Unknown]
  - Disease progression [Not Recovered/Not Resolved]
